FAERS Safety Report 13838959 (Version 2)
Quarter: 2017Q3

REPORT INFORMATION
  Report Type: Spontaneous
  Country: US (occurrence: US)
  Receive Date: 20170807
  Receipt Date: 20170905
  Transmission Date: 20171127
  Serious: No
  Sender: FDA-Public Use
  Company Number: US-BAYER-2017-150238

PATIENT
  Age: 58 Year
  Sex: Female
  Weight: 77 kg

DRUGS (1)
  1. ALEVE [Suspect]
     Active Substance: NAPROXEN SODIUM
     Indication: PAIN
     Dosage: 2 DF, BID
     Route: 048
     Dates: start: 201707

REACTIONS (4)
  - Incorrect dosage administered [Unknown]
  - Drug ineffective [Unknown]
  - Product use issue [Unknown]
  - Osteoporosis [None]

NARRATIVE: CASE EVENT DATE: 201707
